FAERS Safety Report 23408571 (Version 1)
Quarter: 2024Q1

REPORT INFORMATION
  Report Type: Spontaneous
  Country: US (occurrence: US)
  Receive Date: 20240117
  Receipt Date: 20240117
  Transmission Date: 20240409
  Serious: No
  Sender: FDA-Public Use
  Company Number: US-SA-SAC20240115000169

PATIENT
  Sex: Female
  Weight: 107.04 kg

DRUGS (2)
  1. DUPIXENT [Suspect]
     Active Substance: DUPILUMAB
     Indication: Dermatitis atopic
     Dosage: 300 MG EVERY 2 WEEKS
     Route: 058
  2. LOSARTAN [Concomitant]
     Active Substance: LOSARTAN

REACTIONS (2)
  - COVID-19 [Recovering/Resolving]
  - Cough [Recovering/Resolving]
